FAERS Safety Report 8616349 (Version 3)
Quarter: 2013Q2

REPORT INFORMATION
  Report Type: Spontaneous
  Country: US (occurrence: US)
  Receive Date: 20120614
  Receipt Date: 20130514
  Transmission Date: 20140414
  Serious: Yes (Death, Hospitalization)
  Sender: FDA-Public Use
  Company Number: US-ELI_LILLY_AND_COMPANY-US201205008872

PATIENT
  Age: 81 Year
  Sex: Female
  Weight: 38.1 kg

DRUGS (4)
  1. FORTEO [Suspect]
     Indication: OSTEOPOROSIS
     Dosage: 20 UG, QD
     Route: 058
     Dates: start: 20120209, end: 20120620
  2. FORTEO [Suspect]
     Dosage: 20 UG, QD
     Dates: start: 20120521
  3. FORTEO [Suspect]
     Dosage: 20 UG, QD
     Dates: end: 201207
  4. ADVAIR [Concomitant]
     Dosage: UNK

REACTIONS (9)
  - Death [Fatal]
  - Chronic obstructive pulmonary disease [Recovered/Resolved]
  - Viral infection [Unknown]
  - Weight increased [Unknown]
  - Intentional drug misuse [Recovered/Resolved]
  - Diarrhoea [Recovered/Resolved]
  - Vomiting [Recovered/Resolved]
  - Epigastric discomfort [Recovered/Resolved]
  - Nausea [Recovered/Resolved]
